FAERS Safety Report 4272903-2 (Version None)
Quarter: 2004Q1

REPORT INFORMATION
  Report Type: 
  Country: None (occurrence: None)
  Receive Date: 20040114
  Receipt Date: 20040106
  Transmission Date: 20041129
  Serious: Yes (Hospitalization, Disabling, Other)
  Sender: FDA-Public Use
  Company Number: 2003035964

PATIENT
  Age: 64 Year
  Sex: Male
  Weight: 70 kg

DRUGS (3)
  1. TAHOR (ATORVASTATIN) [Suspect]
     Indication: BLOOD CHOLESTEROL
     Dosage: 10 MG (DAILY), ORAL
     Route: 048
     Dates: start: 20010516, end: 20030805
  2. TAMSULOSIN (TAMSULOSIN) [Concomitant]
  3. LABETALOL HCL [Concomitant]

REACTIONS (3)
  - BLOOD CREATINE PHOSPHOKINASE INCREASED [None]
  - ROTATOR CUFF SYNDROME [None]
  - TENDON RUPTURE [None]
